FAERS Safety Report 5651506-9 (Version None)
Quarter: 2008Q1

REPORT INFORMATION
  Report Type: 
  Country: None (occurrence: None)
  Receive Date: 20080131
  Receipt Date: 20071027
  Transmission Date: 20080703
  Serious: No
  Sender: FDA-Public Use
  Company Number: US200710007026

PATIENT
  Age: 76 Year
  Sex: Female

DRUGS (3)
  1. BYETTA [Suspect]
     Indication: TYPE 2 DIABETES MELLITUS
     Dosage: 5SEE IMAGE
     Route: 058
     Dates: start: 20070101, end: 20071025
  2. BYETTA [Suspect]
     Indication: TYPE 2 DIABETES MELLITUS
     Dosage: 5SEE IMAGE
     Route: 058
     Dates: start: 20071027, end: 20071027
  3. BYETTA [Suspect]
     Indication: TYPE 2 DIABETES MELLITUS
     Dosage: 5SEE IMAGE
     Route: 058
     Dates: start: 20071026

REACTIONS (1)
  - INCORRECT DOSE ADMINISTERED [None]
